FAERS Safety Report 23127223 (Version 1)
Quarter: 2023Q4

REPORT INFORMATION
  Report Type: Spontaneous
  Country: AT (occurrence: AT)
  Receive Date: 20231031
  Receipt Date: 20231031
  Transmission Date: 20240109
  Serious: Yes (Other)
  Sender: FDA-Public Use
  Company Number: AT-AMGEN-AUTSP2023189694

PATIENT
  Age: 70 Year
  Sex: Female

DRUGS (3)
  1. TRASTUZUMAB [Suspect]
     Active Substance: TRASTUZUMAB
     Indication: HER2 positive gastric cancer
     Dosage: FOUR CYCLES
     Route: 065
  2. PERTUZUMAB [Suspect]
     Active Substance: PERTUZUMAB
     Indication: HER2 positive gastric cancer
     Dosage: FOUR CYCLES
     Route: 065
  3. FLOT [Concomitant]
     Indication: HER2 positive gastric cancer
     Dosage: FOUR CYCLES

REACTIONS (6)
  - Malignant neoplasm oligoprogression [Unknown]
  - Renal failure [Unknown]
  - Therapy partial responder [Unknown]
  - Retroperitoneal lymphadenopathy [Recovering/Resolving]
  - Off label use [Unknown]
  - Diarrhoea [Unknown]

NARRATIVE: CASE EVENT DATE: 20220301
